FAERS Safety Report 6628235-8 (Version None)
Quarter: 2010Q1

REPORT INFORMATION
  Report Type: 
  Country: None (occurrence: None)
  Receive Date: 20100311
  Receipt Date: 20100222
  Transmission Date: 20100710
  Serious: Yes (Hospitalization, Other)
  Sender: FDA-Public Use
  Company Number: PHHY2010BE08600

PATIENT
  Sex: Female

DRUGS (11)
  1. AFINITOR [Suspect]
     Indication: RENAL CANCER
     Dosage: 10 MG, UNK
     Route: 048
     Dates: start: 20091023, end: 20091026
  2. FORLAX [Concomitant]
     Dosage: AS NEEDED
  3. LYSOMUCIL [Concomitant]
     Dosage: 600 MG DAILY
  4. DUOVENT [Concomitant]
     Indication: BRONCHIAL HYPERREACTIVITY
     Dosage: 3 PUFFS DAILY
  5. ELTHYRONE [Concomitant]
     Dosage: 50 UG DAILY
     Dates: start: 20080801
  6. TEVETEN [Concomitant]
     Dosage: 600 MG DAILY
  7. BISOPROLOL [Concomitant]
     Dosage: 10 MG DAILY
  8. PANTOPRAZOLE [Concomitant]
     Dosage: 40 MG DAILY
  9. ACTONEL [Concomitant]
     Dosage: ONCE PER WEEK
  10. ZOLPIDEM [Concomitant]
     Dosage: 10 MG DAILY
  11. PRAVASTATINE ^SQUIBB^ [Concomitant]
     Dosage: 20 MG DAILY

REACTIONS (6)
  - FATIGUE [None]
  - NAUSEA [None]
  - PNEUMONIA STREPTOCOCCAL [None]
  - PRODUCTIVE COUGH [None]
  - PYREXIA [None]
  - VOMITING [None]
